FAERS Safety Report 6651511-X (Version None)
Quarter: 2010Q1

REPORT INFORMATION
  Report Type: 
  Country: None (occurrence: None)
  Receive Date: 20100325
  Receipt Date: 20100315
  Transmission Date: 20100710
  Serious: Yes (Other)
  Sender: FDA-Public Use
  Company Number: ES-ROCHE-691944

PATIENT
  Sex: Female

DRUGS (2)
  1. BONIVA [Suspect]
     Indication: OSTEOPOROSIS
     Route: 048
     Dates: start: 20080101, end: 20090101
  2. BONIVA [Suspect]
     Route: 048
     Dates: start: 20100301

REACTIONS (2)
  - INTERVERTEBRAL DISC PROTRUSION [None]
  - TOOTHACHE [None]
